FAERS Safety Report 22680571 (Version 3)
Quarter: 2024Q3

REPORT INFORMATION
  Report Type: Spontaneous
  Country: GR (occurrence: GR)
  Receive Date: 20230707
  Receipt Date: 20240930
  Transmission Date: 20241017
  Serious: Yes (Life-Threatening, Other)
  Sender: ABBVIE
  Company Number: None

PATIENT
  Age: 46 Year
  Sex: Female
  Weight: 80 kg

DRUGS (8)
  1. HUMIRA [Suspect]
     Active Substance: ADALIMUMAB
     Indication: Hidradenitis
     Dosage: 1 INJECTION OF 40 MG ONCE A WEEK, STRENGTH: 40 MG
     Route: 058
     Dates: start: 20180713, end: 20230601
  2. TEGRETOL [Concomitant]
     Active Substance: CARBAMAZEPINE
     Indication: Behaviour disorder
     Dosage: 400 MG TWICE A DAY (400MG 1X2)
     Dates: start: 201211
  3. XANAX [Concomitant]
     Active Substance: ALPRAZOLAM
     Indication: Behaviour disorder
     Dosage: 1 MG ONCE A DAY
     Route: 048
     Dates: start: 2017
  4. FOLIC ACID [Concomitant]
     Active Substance: FOLIC ACID
     Indication: Anaemia megaloblastic
     Dosage: 1 TAB ONCE A DAY?5MG/TAB
     Route: 065
     Dates: start: 202301
  5. RISPEFAR [Concomitant]
     Indication: Product used for unknown indication
     Dosage: 1  MG
  6. ASPIRIN [Concomitant]
     Active Substance: ASPIRIN
     Indication: Hypertrophic cardiomyopathy
     Dosage: 80 MG TWICE A DAY (80MG 1X2)
     Dates: start: 20230607
  7. BISOPROLOL FUMARATE [Concomitant]
     Active Substance: BISOPROLOL FUMARATE
     Indication: Hypertrophic cardiomyopathy
     Dosage: 5 MG TWICE A DAY (5MG 1X2)
     Dates: start: 20230607
  8. RISPERDAL [Concomitant]
     Active Substance: RISPERIDONE
     Indication: Behaviour disorder
     Dosage: 1 MG ONCE A DAY
     Dates: start: 201306

REACTIONS (1)
  - Left ventricular hypertrophy [Not Recovered/Not Resolved]

NARRATIVE: CASE EVENT DATE: 20230601
